FAERS Safety Report 20137826 (Version 1)
Quarter: 2021Q4

REPORT INFORMATION
  Report Type: Spontaneous
  Country: ZA (occurrence: ZA)
  Receive Date: 20211202
  Receipt Date: 20211202
  Transmission Date: 20220303
  Serious: Yes (Hospitalization, Other)
  Sender: FDA-Public Use
  Company Number: ZA-ABBVIE-21K-143-4181961-00

PATIENT
  Sex: Male

DRUGS (1)
  1. VALPROATE SODIUM [Suspect]
     Active Substance: VALPROATE SODIUM
     Indication: Product used for unknown indication
     Route: 065

REACTIONS (3)
  - Delirium [Unknown]
  - Hepatic enzyme increased [Unknown]
  - Overdose [Unknown]
